FAERS Safety Report 6333061-3 (Version None)
Quarter: 2009Q3

REPORT INFORMATION
  Report Type: 
  Country: None (occurrence: None)
  Receive Date: 20090828
  Receipt Date: 20090821
  Transmission Date: 20100115
  Serious: Yes (Life-Threatening, Hospitalization, Other)
  Sender: FDA-Public Use
  Company Number: FR-BAYER-200929182GPV

PATIENT
  Age: 80 Year
  Sex: Male
  Weight: 70 kg

DRUGS (5)
  1. FLUDARA [Suspect]
     Indication: CHRONIC LYMPHOCYTIC LEUKAEMIA
     Dosage: TOTAL DAILY DOSE: 45 MG
     Route: 042
     Dates: start: 20090615, end: 20090617
  2. ENDOXAN [Suspect]
     Indication: CHRONIC LYMPHOCYTIC LEUKAEMIA
     Dosage: TOTAL DAILY DOSE: 460 MG
     Route: 042
     Dates: start: 20090615, end: 20090617
  3. MABTHERA [Suspect]
     Indication: CHRONIC LYMPHOCYTIC LEUKAEMIA
     Dosage: TOTAL DAILY DOSE: 375 MG/M2
     Route: 042
     Dates: start: 20090612, end: 20090612
  4. FASTURTEC [Suspect]
     Indication: CHRONIC LYMPHOCYTIC LEUKAEMIA
     Route: 042
     Dates: start: 20090615, end: 20090618
  5. CHLORAMINOPHEN [Concomitant]
     Indication: CHRONIC LYMPHOCYTIC LEUKAEMIA
     Route: 065
     Dates: start: 20080701, end: 20090301

REACTIONS (7)
  - ALTERED STATE OF CONSCIOUSNESS [None]
  - COMA [None]
  - CONFUSIONAL STATE [None]
  - CONVULSION [None]
  - PANCYTOPENIA [None]
  - PARTIAL SEIZURES [None]
  - PLEURAL EFFUSION [None]
